FAERS Safety Report 6820041-4 (Version None)
Quarter: 2010Q3

REPORT INFORMATION
  Report Type: 
  Country: None (occurrence: None)
  Receive Date: 20100707
  Receipt Date: 20100621
  Transmission Date: 20110219
  Serious: Yes (Hospitalization)
  Sender: FDA-Public Use
  Company Number: A0852175A

PATIENT
  Age: 50 Year
  Sex: Male

DRUGS (2)
  1. AVANDIA [Suspect]
     Indication: DIABETES MELLITUS
     Route: 048
     Dates: start: 19990101
  2. AVANDARYL [Suspect]
     Route: 048

REACTIONS (4)
  - CHEST PAIN [None]
  - CONVULSION [None]
  - MYOCARDIAL ISCHAEMIA [None]
  - PAIN [None]
